FAERS Safety Report 20558096 (Version 3)
Quarter: 2022Q2

REPORT INFORMATION
  Report Type: Spontaneous
  Country: GB (occurrence: GB)
  Receive Date: 20220307
  Receipt Date: 20220401
  Transmission Date: 20220721
  Serious: Yes (Hospitalization)
  Sender: FDA-Public Use
  Company Number: GB-ALNYLAM PHARMACEUTICALS, INC.-ALN-2022-000806

PATIENT

DRUGS (1)
  1. ONPATTRO [Suspect]
     Active Substance: PATISIRAN SODIUM
     Indication: Amyloidosis
     Dosage: 21.6, Q3W
     Route: 042
     Dates: start: 20210106

REACTIONS (5)
  - Oesophageal stenosis [Unknown]
  - COVID-19 [Not Recovered/Not Resolved]
  - Hypotension [Unknown]
  - Post-acute COVID-19 syndrome [Unknown]
  - Product dose omission issue [Unknown]
